FAERS Safety Report 8895747 (Version 1)
Quarter: 2012Q4

REPORT INFORMATION
  Report Type: 
  Country: US (occurrence: US)
  Receive Date: 20121107
  Receipt Date: 20121107
  Transmission Date: 20130627
  Serious: Yes (Other)
  Sender: FDA-Public Use
  Company Number: US-MPIJNJ-2012-07661

PATIENT
  Age: 64 Year
  Sex: Male

DRUGS (5)
  1. VELCADE [Suspect]
     Indication: AMYLOIDOSIS
     Dosage: 1.3 mg/m2, Cyclic
  2. VELCADE [Suspect]
     Dosage: 1 mg/m2, Cyclic
  3. REVLIMID [Suspect]
     Indication: AMYLOIDOSIS
     Dosage: 15 mg, Cyclic
  4. DEXAMETHASONE [Suspect]
     Indication: AMYLOIDOSIS
     Dosage: 10 mg, Cyclic
  5. DEXAMETHASONE [Suspect]
     Dosage: 4 mg, Cyclic

REACTIONS (2)
  - Fluid overload [Unknown]
  - Diarrhoea [Unknown]
